FAERS Safety Report 6880093 (Version 2)
Quarter: 2014Q3

REPORT INFORMATION
  Report Type: Spontaneous
  Country: US (occurrence: None)
  Receive Date: 20090107
  Receipt Date: 20140924
  Transmission Date: 20150326
  Serious: Yes (Hospitalization, Other)
  Sender: FDA-Public Use
  Company Number: 2008S1012679

PATIENT
  Age: 67 Year
  Sex: Male

DRUGS (4)
  1. EFFEXOR (VENLAFAXINE HYDROCHLORIDE) [Concomitant]
  2. LISINOPRIL (LISINOPRIL) [Concomitant]
     Active Substance: LISINOPRIL
  3. FLOMAX [Concomitant]
     Active Substance: TAMSULOSIN HYDROCHLORIDE
  4. PHOSPHO-SODA [Suspect]
     Active Substance: SODIUM PHOSPHATE, DIBASIC\SODIUM PHOSPHATE, MONOBASIC
     Indication: COLONOSCOPY
     Dosage: PO
     Route: 048
     Dates: start: 20071105, end: 20071106

REACTIONS (13)
  - Dialysis [None]
  - Renal failure acute [None]
  - Blood potassium decreased [None]
  - Hypotension [None]
  - Blood parathyroid hormone increased [None]
  - Dyspnoea [None]
  - Renal failure chronic [None]
  - Acute phosphate nephropathy [None]
  - Headache [None]
  - Asthenia [None]
  - Fatigue [None]
  - Colon adenoma [None]
  - Presyncope [None]

NARRATIVE: CASE EVENT DATE: 20071114
